FAERS Safety Report 15841423 (Version 1)
Quarter: 2019Q1

REPORT INFORMATION
  Report Type: Report from Study
  Country: None (occurrence: GB)
  Receive Date: 20190118
  Receipt Date: 20190118
  Transmission Date: 20190417
  Serious: Yes (Death, Hospitalization)
  Sender: FDA-Public Use
  Company Number: GB-ABBVIE-19K-167-2629325-00

PATIENT
  Age: 60 Year
  Sex: Female

DRUGS (3)
  1. HUMIRA [Suspect]
     Active Substance: ADALIMUMAB
     Indication: ENTEROPATHIC SPONDYLITIS
     Route: 058
     Dates: start: 20051015, end: 20060310
  2. SULPHASALAZINE [Concomitant]
     Active Substance: SULFASALAZINE
     Indication: ENTEROPATHIC SPONDYLITIS
  3. METHOTREXATE. [Concomitant]
     Active Substance: METHOTREXATE
     Indication: ENTEROPATHIC SPONDYLITIS

REACTIONS (3)
  - Organising pneumonia [Fatal]
  - Multiple organ dysfunction syndrome [Fatal]
  - Respiratory failure [Fatal]

NARRATIVE: CASE EVENT DATE: 20180403
